FAERS Safety Report 4746426-8 (Version None)
Quarter: 2005Q3

REPORT INFORMATION
  Report Type: 
  Country: None (occurrence: None)
  Receive Date: 20050816
  Receipt Date: 20050816
  Transmission Date: 20060218
  Serious: Yes (Hospitalization)
  Sender: FDA-Public Use
  Company Number: None

PATIENT
  Age: 82 Year
  Sex: Female
  Weight: 69.8 kg

DRUGS (22)
  1. LOVENOX [Suspect]
     Indication: CHEST PAIN
     Dosage: 70 MG Q 12 H SC
     Route: 058
     Dates: start: 20050806, end: 20050807
  2. ACETAMINOPHEN [Concomitant]
  3. ALLOPURINOL [Concomitant]
  4. MAALOX PLUS [Concomitant]
  5. ASPIRIN [Concomitant]
  6. ATENOLOL [Concomitant]
  7. ATORVASTATIN [Concomitant]
  8. BENAZEPRIL [Concomitant]
  9. CLOPIDOGREL BISULFATE [Concomitant]
  10. DIAZEPAM [Concomitant]
  11. FUROSEMIDE [Concomitant]
  12. HYDRALAZINE [Concomitant]
  13. INSULIN LISPRO [Concomitant]
  14. ISOSORBIDE [Concomitant]
  15. DINITRATE [Concomitant]
  16. MEPERIDINE [Concomitant]
  17. NITROGLYCERIN [Concomitant]
  18. OXAZEPAM [Concomitant]
  19. PANTOPRAZOLE [Concomitant]
  20. POTASSIUM CHLORIDE [Concomitant]
  21. ROSIGLITAZONE [Concomitant]
  22. AGGRASTAT [Concomitant]

REACTIONS (1)
  - PLATELET COUNT DECREASED [None]
